FAERS Safety Report 8887274 (Version 2)
Quarter: 2012Q4

REPORT INFORMATION
  Report Type: 
  Country: US (occurrence: None)
  Receive Date: 20121105
  Receipt Date: 20121109
  Transmission Date: 20130627
  Serious: No
  Sender: FDA-Public Use
  Company Number: None

PATIENT
  Sex: Male
  Weight: 99.79 kg

DRUGS (2)
  1. STEROID [Suspect]
     Route: 030
  2. FUROSEMIDE [Suspect]

REACTIONS (3)
  - Pyrexia [None]
  - Oedema peripheral [None]
  - Injection site erythema [None]
